FAERS Safety Report 23103554 (Version 1)
Quarter: 2023Q4

REPORT INFORMATION
  Report Type: Spontaneous
  Country: US (occurrence: US)
  Receive Date: 20231025
  Receipt Date: 20231025
  Transmission Date: 20240110
  Serious: No
  Sender: FDA-Public Use
  Company Number: US-AMGEN-USASP2023188465

PATIENT
  Age: 29 Year
  Sex: Female

DRUGS (5)
  1. OTEZLA [Suspect]
     Active Substance: APREMILAST
     Indication: Product used for unknown indication
     Dosage: UNK
     Route: 065
  2. SYNTHROID [Concomitant]
     Active Substance: LEVOTHYROXINE SODIUM
     Dosage: UNK
     Route: 065
  3. CABERGOLINE [Concomitant]
     Active Substance: CABERGOLINE
     Dosage: UNK
     Route: 065
  4. CORLANOR [Concomitant]
     Active Substance: IVABRADINE HYDROCHLORIDE
     Dosage: UNK
     Route: 065
  5. CLONIDINE [Concomitant]
     Active Substance: CLONIDINE
     Dosage: UNK
     Route: 065

REACTIONS (9)
  - Breast swelling [Unknown]
  - Breast pain [Unknown]
  - Cold sweat [Unknown]
  - Pain [Unknown]
  - Malaise [Unknown]
  - Body temperature abnormal [Unknown]
  - Abdominal pain [Unknown]
  - Nausea [Unknown]
  - Diarrhoea [Unknown]
